FAERS Safety Report 6816262-7 (Version None)
Quarter: 2010Q2

REPORT INFORMATION
  Report Type: 
  Country: None (occurrence: None)
  Receive Date: 20100630
  Receipt Date: 20100615
  Transmission Date: 20101027
  Serious: Yes (Hospitalization, Other)
  Sender: FDA-Public Use
  Company Number: 014061

PATIENT
  Sex: Female
  Weight: 73 kg

DRUGS (2)
  1. CIMZIA [Suspect]
     Indication: CROHN'S DISEASE
     Dosage: SUBCUTANEOUS
     Route: 058
     Dates: start: 20090301, end: 20090601
  2. COZAAR [Concomitant]

REACTIONS (3)
  - COUGH [None]
  - DYSPNOEA [None]
  - HISTOPLASMOSIS [None]
